FAERS Safety Report 25217262 (Version 1)
Quarter: 2025Q2

REPORT INFORMATION
  Report Type: Spontaneous
  Country: US (occurrence: US)
  Receive Date: 20250419
  Receipt Date: 20250419
  Transmission Date: 20250717
  Serious: Yes (Other)
  Sender: PROACTIV
  Company Number: US-The Proactiv LLC-2175195

PATIENT
  Sex: Female

DRUGS (3)
  1. PROACTIV CLEAN MINERAL ACNE CLEANSER [Suspect]
     Active Substance: SULFUR
  2. AZELAIC ACID [Suspect]
     Active Substance: AZELAIC ACID
  3. PROACTIV CLEAN ACNE CLEARING HYDRATOR [Suspect]
     Active Substance: SALICYLIC ACID

REACTIONS (1)
  - Ischaemic stroke [Unknown]
